FAERS Safety Report 11375470 (Version 3)
Quarter: 2018Q2

REPORT INFORMATION
  Report Type: Spontaneous
  Country: FR (occurrence: FR)
  Receive Date: 20150813
  Receipt Date: 20180406
  Transmission Date: 20180711
  Serious: Yes (Death, Hospitalization, Other)
  Sender: FDA-Public Use
  Company Number: FR-ASTRAZENECA-2015SE77239

PATIENT
  Age: 13691 Day
  Sex: Female
  Weight: 45.6 kg

DRUGS (15)
  1. XEROQUEL [Suspect]
     Active Substance: QUETIAPINE FUMARATE
     Indication: ABNORMAL BEHAVIOUR
     Route: 048
     Dates: start: 20130402, end: 20150206
  2. LOXAPAC [Suspect]
     Active Substance: LOXAPINE
     Indication: ABNORMAL BEHAVIOUR
     Dosage: 300.0MG AS REQUIRED
     Route: 048
     Dates: start: 20150504, end: 20150507
  3. PARKINANE [Concomitant]
     Active Substance: TRIHEXYPHENIDYL HYDROCHLORIDE
     Indication: PRODUCT USED FOR UNKNOWN INDICATION
     Dates: start: 20120619, end: 20150227
  4. ATARAX [Concomitant]
     Active Substance: HYDROXYZINE HYDROCHLORIDE
     Indication: PRODUCT USED FOR UNKNOWN INDICATION
     Dosage: 25.0MG UNKNOWN
     Route: 048
     Dates: start: 20150106
  5. ABILIFY [Suspect]
     Active Substance: ARIPIPRAZOLE
     Indication: ABNORMAL BEHAVIOUR
     Route: 048
     Dates: start: 20150117, end: 20150224
  6. DEPAKOTE [Concomitant]
     Active Substance: DIVALPROEX SODIUM
     Indication: PRODUCT USED FOR UNKNOWN INDICATION
     Dates: start: 20140711, end: 20150116
  7. OLANZAPINE. [Suspect]
     Active Substance: OLANZAPINE
     Dosage: 5.0MG UNKNOWN
     Route: 048
     Dates: start: 20150720, end: 20150720
  8. LOXAPAC [Suspect]
     Active Substance: LOXAPINE
     Indication: ABNORMAL BEHAVIOUR
     Route: 048
     Dates: start: 20120106, end: 20150206
  9. ATARAX [Concomitant]
     Active Substance: HYDROXYZINE HYDROCHLORIDE
     Indication: PRODUCT USED FOR UNKNOWN INDICATION
     Dosage: 25.0MG UNKNOWN
     Route: 048
     Dates: start: 20120106
  10. THERALENE [Suspect]
     Active Substance: TRIMEPRAZINE
     Indication: PRODUCT USED FOR UNKNOWN INDICATION
     Dosage: 5.0MG UNKNOWN
     Route: 048
     Dates: start: 20140610, end: 20150303
  11. ZOPICLONE [Concomitant]
     Active Substance: ZOPICLONE
     Indication: PRODUCT USED FOR UNKNOWN INDICATION
     Route: 048
     Dates: start: 20120124
  12. TERCIAN [Concomitant]
     Active Substance: CYAMEMAZINE
     Dosage: 25.0MG UNKNOWN
  13. ABILIFY [Suspect]
     Active Substance: ARIPIPRAZOLE
     Indication: ABNORMAL BEHAVIOUR
     Route: 048
     Dates: start: 20150224, end: 20150227
  14. LYSANXIA [Concomitant]
     Active Substance: PRAZEPAM
     Indication: PRODUCT USED FOR UNKNOWN INDICATION
     Dosage: 10.0MG UNKNOWN
     Route: 048
     Dates: start: 20120106, end: 20150223
  15. VALIUM [Concomitant]
     Active Substance: DIAZEPAM
     Indication: PRODUCT USED FOR UNKNOWN INDICATION
     Dosage: PROGRESSIVE INCREASE OF DOSE FROM 15 MG TO 30 MG
     Route: 048
     Dates: start: 20150213

REACTIONS (24)
  - Respiratory disorder [Unknown]
  - Septic shock [Unknown]
  - Blood glucose increased [Unknown]
  - Off label use [Unknown]
  - Blood creatinine decreased [Unknown]
  - Rhabdomyolysis [Unknown]
  - Dyskinesia [Fatal]
  - Hypoxia [Unknown]
  - Malnutrition [Unknown]
  - Nuclear magnetic resonance imaging brain abnormal [Unknown]
  - Neurological decompensation [Fatal]
  - Decubitus ulcer [Unknown]
  - Muscle spasticity [Unknown]
  - Haemodynamic instability [Unknown]
  - Extrapyramidal disorder [Not Recovered/Not Resolved]
  - Akathisia [Unknown]
  - Blood sodium increased [Unknown]
  - Neutrophil count increased [Unknown]
  - Fall [Unknown]
  - Feeding disorder [Unknown]
  - Pneumonia aspiration [Unknown]
  - Dysphagia [Unknown]
  - Negativism [Unknown]
  - Dehydration [Unknown]

NARRATIVE: CASE EVENT DATE: 20150206
